FAERS Safety Report 12624587 (Version 1)
Quarter: 2016Q3

REPORT INFORMATION
  Report Type: Spontaneous
  Country: US (occurrence: None)
  Receive Date: 20160804
  Receipt Date: 20160804
  Transmission Date: 20161109
  Serious: No
  Sender: FDA-Public Use
  Company Number: None

PATIENT
  Age: 21 Year
  Sex: Female
  Weight: 61.24 kg

DRUGS (2)
  1. FEIRASET [Concomitant]
  2. BOTOX [Suspect]
     Active Substance: ONABOTULINUMTOXINA
     Indication: MIGRAINE
     Dosage: AS NEEDED INJECTED VARIOUS POINTS AROUND MY HEAD
     Dates: start: 20160713

REACTIONS (5)
  - Drug ineffective [None]
  - Muscular weakness [None]
  - Neck pain [None]
  - Limb discomfort [None]
  - Back pain [None]

NARRATIVE: CASE EVENT DATE: 20160723
